FAERS Safety Report 6500659-9 (Version None)
Quarter: 2009Q4

REPORT INFORMATION
  Report Type: 
  Country: None (occurrence: None)
  Receive Date: 20091216
  Receipt Date: 20081230
  Transmission Date: 20100525
  Serious: No
  Sender: FDA-Public Use
  Company Number: A0761618A

PATIENT
  Age: 39 Year
  Sex: Female

DRUGS (1)
  1. COMMIT [Suspect]

REACTIONS (11)
  - DYSGEUSIA [None]
  - FACIAL PAIN [None]
  - ILL-DEFINED DISORDER [None]
  - ORAL DISCOMFORT [None]
  - ORAL MUCOSAL EXFOLIATION [None]
  - ORAL PAIN [None]
  - OROPHARYNGEAL BLISTERING [None]
  - PAIN [None]
  - STOMATITIS [None]
  - THERMAL BURN [None]
  - WEIGHT DECREASED [None]
